FAERS Safety Report 8437117-0 (Version None)
Quarter: 2012Q2

REPORT INFORMATION
  Report Type: 
  Country: None (occurrence: None)
  Receive Date: 20120614
  Receipt Date: 20120503
  Transmission Date: 20120825
  Serious: No
  Sender: FDA-Public Use
  Company Number: US-AMGEN-USASP2011027559

PATIENT
  Age: 87 Year
  Sex: Female

DRUGS (7)
  1. TOVIAZ [Concomitant]
  2. PROLIA [Suspect]
     Indication: OSTEOPOROSIS POSTMENOPAUSAL
     Dosage: UNK
     Route: 058
     Dates: start: 20111201
  3. PROLIA [Suspect]
     Indication: POLYARTHRITIS
  4. TRAMADOL HCL [Concomitant]
  5. MELOXICAM [Concomitant]
  6. ACETAMINOPHEN [Concomitant]
  7. VITAMIN D [Concomitant]

REACTIONS (4)
  - ARTHRITIS [None]
  - BONE PAIN [None]
  - ARTHRALGIA [None]
  - PAIN IN EXTREMITY [None]
